FAERS Safety Report 17187160 (Version 1)
Quarter: 2019Q4

REPORT INFORMATION
  Report Type: Spontaneous
  Country: US (occurrence: US)
  Receive Date: 20191220
  Receipt Date: 20191220
  Transmission Date: 20200122
  Serious: Yes (Hospitalization)
  Sender: FDA-Public Use
  Company Number: US-ARRAY-2019-06990

PATIENT

DRUGS (2)
  1. MEKTOVI [Suspect]
     Active Substance: BINIMETINIB
     Indication: NEOPLASM MALIGNANT
     Dosage: 30 MG, BID 14 DAYS ON AND 14 DAYS OFF
     Route: 048
  2. BRAFTOVI [Suspect]
     Active Substance: ENCORAFENIB
     Indication: NEOPLASM MALIGNANT
     Dosage: 300 MG, QD 14 DAYS ON AND 14 DAYS OFF
     Route: 048

REACTIONS (3)
  - Off label use [Unknown]
  - Infection [Unknown]
  - Product dose omission [Unknown]
